FAERS Safety Report 7986369-X (Version None)
Quarter: 2011Q4

REPORT INFORMATION
  Report Type: 
  Country: None (occurrence: None)
  Receive Date: 20111216
  Receipt Date: 20110214
  Transmission Date: 20120403
  Serious: No
  Sender: FDA-Public Use
  Company Number: US-GLAXOSMITHKLINE-A0913422A

PATIENT
  Age: 50 Year
  Sex: Male

DRUGS (6)
  1. ALLOPURINOL [Concomitant]
  2. LIPITOR [Concomitant]
  3. COZAAR [Concomitant]
  4. WARFARIN SODIUM [Concomitant]
  5. COREG CR [Suspect]
     Indication: ATRIAL FIBRILLATION
     Dosage: 80MG PER DAY
     Route: 048
     Dates: start: 20090101
  6. DIGOXIN [Concomitant]

REACTIONS (2)
  - WEIGHT INCREASED [None]
  - BLOOD GLUCOSE INCREASED [None]
